FAERS Safety Report 6211353-6 (Version None)
Quarter: 2009Q2

REPORT INFORMATION
  Report Type: 
  Country: None (occurrence: None)
  Receive Date: 20090528
  Receipt Date: 20090514
  Transmission Date: 20091009
  Serious: Yes (Death, Other)
  Sender: FDA-Public Use
  Company Number: 2009005629

PATIENT

DRUGS (3)
  1. TRISENOX [Suspect]
     Indication: MULTIPLE MYELOMA
     Dosage: INTRAVENOUS DRIP/ONGOING AT THE TIME OF DEATH
     Route: 041
  2. ASCORBIC ACID [Suspect]
     Indication: MULTIPLE MYELOMA
     Dosage: ONGOING AT THE TIME OF DEATH
  3. VELCADE [Suspect]

REACTIONS (24)
  - ALANINE AMINOTRANSFERASE ABNORMAL [None]
  - ANOREXIA [None]
  - ASPARTATE AMINOTRANSFERASE ABNORMAL [None]
  - BACK PAIN [None]
  - BLOOD ALKALINE PHOSPHATASE ABNORMAL [None]
  - BLOOD CREATINE ABNORMAL [None]
  - COGNITIVE DISORDER [None]
  - DIARRHOEA [None]
  - DISEASE PROGRESSION [None]
  - DYSPNOEA [None]
  - FATIGUE [None]
  - FLANK PAIN [None]
  - HAEMATOMA [None]
  - HAEMOGLOBIN ABNORMAL [None]
  - HYPERCALCAEMIA [None]
  - HYPERGLYCAEMIA [None]
  - HYPERSOMNIA [None]
  - MUCOSAL INFLAMMATION [None]
  - MULTIPLE MYELOMA [None]
  - PAIN [None]
  - STAPHYLOCOCCAL INFECTION [None]
  - STOMATITIS [None]
  - TENDERNESS [None]
  - WOUND COMPLICATION [None]
